FAERS Safety Report 8979813 (Version 1)
Quarter: 2012Q4

REPORT INFORMATION
  Report Type: 
  Country: DE (occurrence: DE)
  Receive Date: 20121221
  Receipt Date: 20121221
  Transmission Date: 20130627
  Serious: Yes (Death, Other)
  Sender: FDA-Public Use
  Company Number: DE-CELGENEUS-062-21880-12111012

PATIENT

DRUGS (21)
  1. REVLIMID [Suspect]
     Indication: MULTIPLE MYELOMA
     Route: 048
     Dates: start: 200904, end: 201208
  2. REVLIMID [Suspect]
     Route: 048
  3. REVLIMID [Suspect]
     Route: 048
  4. DEXAMETHASONE [Concomitant]
     Indication: DRUG USE FOR UNKNOWN INDICATION
     Route: 065
  5. DEXAMETHASONE [Concomitant]
     Route: 065
  6. DEXAMETHASONE [Concomitant]
     Route: 065
  7. DEXAMETHASONE [Concomitant]
     Route: 045
  8. DEXAMETHASONE [Concomitant]
     Route: 065
  9. EPIRUBICIN [Concomitant]
     Indication: DRUG USE FOR UNKNOWN INDICATION
     Route: 065
  10. BENDAMUSTINE [Concomitant]
     Indication: DRUG USE FOR UNKNOWN INDICATION
     Route: 065
  11. BENDAMUSTINE [Concomitant]
     Route: 065
  12. BENDAMUSTINE [Concomitant]
     Route: 065
  13. BENDAMUSTINE [Concomitant]
     Route: 065
  14. BENDAMUSTINE [Concomitant]
     Route: 065
  15. BENDAMUSTINE [Concomitant]
     Route: 065
  16. CARFILZOMIB [Concomitant]
     Indication: DRUG USE FOR UNKNOWN INDICATION
     Route: 065
  17. ELOTUZUMAB [Concomitant]
     Indication: DRUG USE FOR UNKNOWN INDICATION
     Route: 065
  18. PIOGLITAZONE [Concomitant]
     Indication: DRUG USE FOR UNKNOWN INDICATION
     Route: 065
  19. RITUXIMAB [Concomitant]
     Indication: DRUG USE FOR UNKNOWN INDICATION
     Route: 065
  20. BORTEZOMIB [Concomitant]
     Indication: DRUG USE FOR UNKNOWN INDICATION
     Route: 065
  21. CYCLOPHOSPHAMIDE [Concomitant]
     Indication: DRUG USE FOR UNKNOWN INDICATION
     Route: 065

REACTIONS (11)
  - Encephalitis viral [Fatal]
  - Thrombosis [Unknown]
  - Gait disturbance [Unknown]
  - Personality change [Unknown]
  - Mucosal inflammation [Unknown]
  - Haematotoxicity [Unknown]
  - Plasma cell myeloma [Unknown]
  - Fatigue [Unknown]
  - Muscle spasms [Unknown]
  - Infection [Unknown]
  - Polyneuropathy [Unknown]
